FAERS Safety Report 7977847-8 (Version None)
Quarter: 2011Q4

REPORT INFORMATION
  Report Type: 
  Country: None (occurrence: None)
  Receive Date: 20111214
  Receipt Date: 20111202
  Transmission Date: 20120403
  Serious: No
  Sender: FDA-Public Use
  Company Number: US-AMGEN-USASP2011052935

PATIENT
  Age: 57 Year
  Sex: Female
  Weight: 69 kg

DRUGS (7)
  1. PLAQUENIL [Concomitant]
     Dosage: 200 MG, BID
     Route: 048
     Dates: start: 20110725
  2. METHOTREXATE [Concomitant]
     Dosage: 2.5 MG, 6 TABLETS BY MOUTH ONCE A WEEK.
     Route: 048
     Dates: start: 20110725
  3. ENBREL [Suspect]
     Indication: RHEUMATOID ARTHRITIS
     Dosage: 50 MG, QWK
     Route: 058
     Dates: start: 20110725
  4. FOLVITE                            /00024201/ [Concomitant]
     Dosage: 1 MG, QD
     Route: 048
     Dates: start: 20110725
  5. LODINE [Concomitant]
     Dosage: 300 MG, (2 TIMES DAILY AS NEEDED)
     Route: 048
     Dates: start: 20110725
  6. DELTASON [Concomitant]
     Dosage: 5 MG, QD
     Route: 048
     Dates: start: 20110725
  7. CELEXA [Concomitant]
     Dosage: 20 MG, QD
     Route: 048
     Dates: start: 20110725

REACTIONS (1)
  - MUSCULOSKELETAL STIFFNESS [None]
